FAERS Safety Report 9643477 (Version 1)
Quarter: 2013Q4

REPORT INFORMATION
  Report Type: Spontaneous
  Country: GB (occurrence: None)
  Receive Date: 20131022
  Receipt Date: 20131022
  Transmission Date: 20140711
  Serious: Yes (Other)
  Sender: FDA-Public Use
  Company Number: AUR-APL-2013-08641

PATIENT
  Age: 27 Year
  Sex: Female

DRUGS (3)
  1. RIBAVIRIN [Suspect]
     Indication: HEPATITIS C
     Route: 048
     Dates: start: 20130117
  2. PEGINTERFERON ALFA-2A [Suspect]
     Indication: HEPATITIS C
     Route: 058
     Dates: start: 20130117
  3. INCIVO (TELAPREVIR) [Suspect]
     Indication: HEPATITIS C
     Route: 048
     Dates: start: 20130117

REACTIONS (2)
  - Rash generalised [None]
  - Rash pruritic [None]
